FAERS Safety Report 11860997 (Version 2)
Quarter: 2015Q4

REPORT INFORMATION
  Report Type: Spontaneous
  Country: JP (occurrence: JP)
  Receive Date: 20151222
  Receipt Date: 20151229
  Transmission Date: 20160305
  Serious: Yes (Death, Life-Threatening)
  Sender: FDA-Public Use
  Company Number: JP-DSJP-DSJ-2015-138288

PATIENT

DRUGS (8)
  1. HERBESSER [Concomitant]
     Active Substance: DILTIAZEM HYDROCHLORIDE
     Dosage: 30 MG, TID, AFTER EACH MEAL
     Route: 048
     Dates: end: 20151129
  2. LIXIANA TABLETS 30MG [Suspect]
     Active Substance: EDOXABAN TOSILATE MONOHYDRATE
     Indication: ATRIAL FIBRILLATION
     Dosage: 30 MG, QD
     Route: 048
     Dates: start: 20151125, end: 20151203
  3. GASMOTIN [Concomitant]
     Active Substance: MOSAPRIDE CITRATE
     Dosage: 5 MG, TID, AFTER EACH MEAL
     Route: 048
     Dates: end: 20151129
  4. VASOLAN                            /00014302/ [Concomitant]
     Active Substance: VERAPAMIL HYDROCHLORIDE
     Dosage: 40 MG, TID, AFTER EACH MEAL
     Route: 048
     Dates: end: 20151129
  5. HALFDIGOXIN [Concomitant]
     Active Substance: DIGOXIN
     Dosage: 0.125 MG, QD, AFTER BREAKFAST
     Route: 048
     Dates: end: 20151129
  6. OLMETEC TABLETS 20MG [Concomitant]
     Active Substance: OLMESARTAN MEDOXOMIL
     Dosage: 20 MG, QD, AFTER BREAKFAST
     Route: 048
     Dates: end: 20151129
  7. TAKEPRON [Concomitant]
     Active Substance: LANSOPRAZOLE
     Dosage: 15 MG, QD, AFTER BREAKFAST
     Route: 048
     Dates: end: 20151129
  8. JUZENTAIHOTO                       /07985601/ [Concomitant]
     Active Substance: HERBALS
     Dosage: 2.5 G, BID, BEFORE BREAKFAST AND DINNER
     Route: 048
     Dates: start: 20151127, end: 20151203

REACTIONS (2)
  - Epistaxis [Not Recovered/Not Resolved]
  - Pneumonia aspiration [Fatal]

NARRATIVE: CASE EVENT DATE: 20151203
